FAERS Safety Report 5097759-X (Version None)
Quarter: 2006Q3

REPORT INFORMATION
  Report Type: 
  Country: None (occurrence: None)
  Receive Date: 20060901
  Receipt Date: 20060818
  Transmission Date: 20061208
  Serious: Yes (Hospitalization)
  Sender: FDA-Public Use
  Company Number: WAES 0607KOR00030

PATIENT
  Age: 5 Year
  Sex: Female

DRUGS (14)
  1. BUDESONIDE [Suspect]
     Indication: ASTHMA
     Dosage: 0.5 MG/BID INH
     Route: 025
     Dates: start: 20050316
  2. ALBUTEROL SULFATE [Concomitant]
  3. ALUMINUM HYDROXIDE [Concomitant]
  4. AMOXICILLIN [Concomitant]
  5. AMOXICILLIN/CLAULANATE POTSSIUM [Concomitant]
  6. AMPICILLIN SODIUM/SULBACTAM SODIUM [Concomitant]
  7. BAMBUTEROL HCL [Concomitant]
  8. DEXTROSE + POTASSIUM CHLORIDE [Concomitant]
  9. ENGLISH IVY [Concomitant]
  10. ENGLISH IVY [Concomitant]
  11. LACTOBACILLUS ACIDOPHILUS, TYNDALLIZED [Concomitant]
  12. METHYLPREDNISOLONE SODIUM SUCCINATE [Concomitant]
  13. SODIUM CHLORIDE [Concomitant]
  14. THEOPHYLLINE [Concomitant]

REACTIONS (2)
  - ASTHMA [None]
  - CHRONIC SINUSITIS [None]
